FAERS Safety Report 4933035-0 (Version None)
Quarter: 2006Q1

REPORT INFORMATION
  Report Type: 
  Country: None (occurrence: None)
  Receive Date: 20060301
  Receipt Date: 20060217
  Transmission Date: 20060701
  Serious: Yes (Other)
  Sender: FDA-Public Use
  Company Number: 2006S1000032

PATIENT
  Age: 38 Year
  Sex: Male
  Weight: 80 kg

DRUGS (19)
  1. CUBICIN [Suspect]
     Indication: ENDOCARDITIS STAPHYLOCOCCAL
     Dosage: 4 MG/KG;Q48H
     Dates: start: 20060110, end: 20060121
  2. ALBUTEROL [Concomitant]
  3. ATROVENT [Concomitant]
  4. ATENOLOL [Concomitant]
  5. CYCLOSPORINE [Concomitant]
  6. PREDNISONE [Concomitant]
  7. MYCOPHENOLATE [Concomitant]
  8. LIPITOR [Concomitant]
  9. LASIX [Concomitant]
  10. PREVACID [Concomitant]
  11. GABAPENTIN [Concomitant]
  12. VECURONIUM BROMIDE [Concomitant]
  13. MIDAZOLAM [Concomitant]
  14. FENTANYL CITRATE [Concomitant]
  15. WARFARIN SODIUM [Concomitant]
  16. LOVENOX [Concomitant]
  17. INSULIN [Concomitant]
  18. GENTAMICIN [Concomitant]
  19. RIFAMPIN [Concomitant]

REACTIONS (10)
  - CARDIAC FAILURE CONGESTIVE [None]
  - CARDIAC VALVE VEGETATION [None]
  - COMA [None]
  - DELAYED RECOVERY FROM ANAESTHESIA [None]
  - DIALYSIS [None]
  - LEUKAEMOID REACTION [None]
  - MITRAL VALVE REPLACEMENT [None]
  - PSEUDOBULBAR PALSY [None]
  - RENAL IMPAIRMENT [None]
  - WHITE BLOOD CELL COUNT DECREASED [None]
